FAERS Safety Report 9120457 (Version 2)
Quarter: 2013Q1

REPORT INFORMATION
  Report Type: Spontaneous
  Country: US (occurrence: US)
  Receive Date: 20130226
  Receipt Date: 20130315
  Transmission Date: 20140127
  Serious: Yes (Disabling, Other)
  Sender: FDA-Public Use
  Company Number: US-CELGENEUS-163-21880-13022928

PATIENT
  Age: 80 Year
  Sex: Female
  Weight: 61.29 kg

DRUGS (10)
  1. REVLIMID [Suspect]
     Indication: 5Q MINUS SYNDROME
     Dosage: 10 MILLIGRAM
     Route: 048
     Dates: start: 200908
  2. REVLIMID [Suspect]
     Dosage: 10 MILLIGRAM
     Route: 048
     Dates: start: 200909, end: 201005
  3. REVLIMID [Suspect]
     Dosage: 5 MILLIGRAM
     Route: 048
     Dates: start: 20121217, end: 20130113
  4. ANAGRELIDE [Concomitant]
     Indication: THROMBOCYTOSIS
     Route: 065
  5. ARANESP [Concomitant]
     Indication: ANAEMIA
     Route: 065
     Dates: start: 200606
  6. ARANESP [Concomitant]
     Indication: MYELODYSPLASTIC SYNDROME
  7. LASIX [Concomitant]
     Indication: OEDEMA
     Dosage: 20 MILLIGRAM
     Route: 065
  8. FOLIC ACID [Concomitant]
     Indication: SUPPLEMENTATION THERAPY
     Dosage: 1 TABLET
     Route: 065
  9. B12 [Concomitant]
     Indication: HYPERTENSION
     Dosage: 10 MILLIGRAM
     Route: 065
  10. LANTUS [Concomitant]
     Indication: DIABETES MELLITUS
     Route: 058

REACTIONS (2)
  - Retinal vein occlusion [Not Recovered/Not Resolved]
  - Erythema multiforme [Recovered/Resolved]
